FAERS Safety Report 8267245-4 (Version None)
Quarter: 2012Q2

REPORT INFORMATION
  Report Type: 
  Country: None (occurrence: None)
  Receive Date: 20120409
  Receipt Date: 20120405
  Transmission Date: 20120825
  Serious: Yes (Other)
  Sender: FDA-Public Use
  Company Number: US-PFIZER INC-2012056367

PATIENT
  Sex: Male
  Weight: 88.6 kg

DRUGS (13)
  1. ATENOLOL [Concomitant]
     Dosage: 50 MG, 1X/DAY
     Route: 048
     Dates: start: 20111110
  2. HYDROCHLOROTHIAZIDE [Concomitant]
     Dosage: 25 MG, 1X/DAY
     Route: 048
     Dates: start: 20111012
  3. DOXAZOSIN MESILATE [Concomitant]
     Dosage: 2 MG, 1X/DAY
     Route: 048
     Dates: start: 20111012
  4. PRAVASTATIN SODIUM [Concomitant]
     Dosage: 40 MG, 1X/DAY
     Route: 048
     Dates: start: 20111110
  5. SERTRALINE HYDROCHLORIDE [Concomitant]
     Dosage: 100 MG, 1X/DAY
     Route: 048
     Dates: start: 20111012
  6. LISINOPRIL [Concomitant]
     Dosage: 40 MG, 1X/DAY
     Route: 048
     Dates: start: 20111012
  7. FLUOXETINE [Concomitant]
     Dosage: UNK
  8. ANDROGEL [Concomitant]
     Dosage: 1.25 G/ACTUATION (1%) APPLY 4 PUMPS (5G) EVERY DAY
     Route: 061
     Dates: start: 20111012
  9. SUTENT [Suspect]
     Indication: RENAL CELL CARCINOMA
     Dosage: 50 MG,INSTRUCTED TO TAKE IT FOR TWO WEEKS ON, THEN REST FOR ONE WEEK OFF)
     Dates: start: 20120105, end: 20120327
  10. SUTENT [Suspect]
     Indication: RENAL CANCER
     Dosage: 50 MG, 1X/DAY, X14 DAYS, OFF 7 DAYS, REPEAT
     Route: 048
     Dates: start: 20111222
  11. SYMBYAX [Concomitant]
     Dosage: UNK
  12. AMLODIPINE [Concomitant]
     Dosage: 10 MG, 1X/DAY
     Route: 048
     Dates: start: 20111012
  13. ACETYLSALICYLIC ACID [Concomitant]
     Dosage: 81 MG, 1X/DAY
     Route: 048
     Dates: start: 20111012

REACTIONS (6)
  - PALMAR-PLANTAR ERYTHRODYSAESTHESIA SYNDROME [None]
  - GASTRIC ULCER [None]
  - DIARRHOEA [None]
  - CONSTIPATION [None]
  - ABDOMINAL PAIN UPPER [None]
  - DYSGEUSIA [None]
